FAERS Safety Report 4263888-3 (Version None)
Quarter: 2004Q1

REPORT INFORMATION
  Report Type: 
  Country: None (occurrence: None)
  Receive Date: 20040102
  Receipt Date: 20031217
  Transmission Date: 20041129
  Serious: No
  Sender: FDA-Public Use
  Company Number: 2003-110822-NL

PATIENT
  Age: 41 Year
  Sex: Male

DRUGS (1)
  1. MIRTAZAPINE [Suspect]
     Indication: DEPRESSION
     Dosage: 15 MG ORAL
     Route: 048
     Dates: start: 20031010, end: 20031205

REACTIONS (2)
  - HYPOTRICHOSIS [None]
  - LIVER FUNCTION TEST ABNORMAL [None]
